FAERS Safety Report 6060948-1 (Version None)
Quarter: 2009Q1

REPORT INFORMATION
  Report Type: 
  Country: None (occurrence: None)
  Receive Date: 20090202
  Receipt Date: 20090121
  Transmission Date: 20090719
  Serious: Yes (Hospitalization, Other)
  Sender: FDA-Public Use
  Company Number: US-ROCHE-590536

PATIENT
  Sex: Male
  Weight: 93.4 kg

DRUGS (16)
  1. CAPECITABINE [Suspect]
     Dosage: DOSE: 1500 MG IN AM AND 1500 MG IN PM X 14 DAYS
     Route: 048
  2. TARCEVA [Concomitant]
  3. M.V.I. [Concomitant]
  4. ACIPHEX [Concomitant]
  5. NOVOLOG [Concomitant]
  6. AMBIEN [Concomitant]
  7. ATENOLOL [Concomitant]
  8. CREON [Concomitant]
  9. CRESTOR [Concomitant]
  10. FLAGYL [Concomitant]
  11. GAS-X [Concomitant]
  12. LANTUS [Concomitant]
  13. LEVAQUIN [Concomitant]
  14. NORVASC [Concomitant]
  15. ULTRAM [Concomitant]
  16. URSODIOL [Concomitant]

REACTIONS (4)
  - CLOSTRIDIAL INFECTION [None]
  - DIARRHOEA [None]
  - ESCHERICHIA BACTERAEMIA [None]
  - VOMITING [None]
